FAERS Safety Report 8505178-6 (Version None)
Quarter: 2012Q3

REPORT INFORMATION
  Report Type: 
  Country: None (occurrence: None)
  Receive Date: 20120712
  Receipt Date: 20120710
  Transmission Date: 20120928
  Serious: Yes (Other)
  Sender: FDA-Public Use
  Company Number: US-PFIZER INC-2012165435

PATIENT
  Sex: Female
  Weight: 74.83 kg

DRUGS (2)
  1. EFFEXOR XR [Suspect]
     Indication: DEPRESSION
     Dosage: 150 MG, 1X/DAY
     Route: 048
  2. HYDROXYUREA [Concomitant]
     Indication: PLATELET COUNT INCREASED
     Dosage: UNK

REACTIONS (3)
  - THINKING ABNORMAL [None]
  - FEELING ABNORMAL [None]
  - DRUG INEFFECTIVE [None]
